FAERS Safety Report 4974024-X (Version None)
Quarter: 2006Q2

REPORT INFORMATION
  Report Type: 
  Country: None (occurrence: None)
  Receive Date: 20060417
  Receipt Date: 20060406
  Transmission Date: 20061013
  Serious: Yes (Other)
  Sender: FDA-Public Use
  Company Number: US-JNJFOC-20060401568

PATIENT
  Sex: Female

DRUGS (21)
  1. REMICADE [Suspect]
     Route: 042
  2. REMICADE [Suspect]
     Indication: RHEUMATOID ARTHRITIS
     Route: 042
  3. ECOTRIN [Concomitant]
  4. FOLIC ACID [Concomitant]
  5. INDERAL [Concomitant]
  6. METHOTREXATE [Concomitant]
  7. ALEVE [Concomitant]
  8. MULTI-VITAMIN [Concomitant]
  9. MULTI-VITAMIN [Concomitant]
  10. MULTI-VITAMIN [Concomitant]
  11. MULTI-VITAMIN [Concomitant]
  12. MULTI-VITAMIN [Concomitant]
  13. MULTI-VITAMIN [Concomitant]
  14. MULTI-VITAMIN [Concomitant]
  15. MULTI-VITAMIN [Concomitant]
  16. CALCIUM+D [Concomitant]
  17. CALCIUM+D [Concomitant]
  18. GOLD [Concomitant]
  19. QUINAPRIL [Concomitant]
  20. NIFEDIAC [Concomitant]
  21. TOPROL-XL [Concomitant]

REACTIONS (2)
  - NEPHROTIC SYNDROME [None]
  - SYSTEMIC LUPUS ERYTHEMATOSUS [None]
